FAERS Safety Report 8780348 (Version 1)
Quarter: 2012Q4

REPORT INFORMATION
  Report Type: Spontaneous
  Country: US (occurrence: None)
  Receive Date: 20120905
  Receipt Date: 20120905
  Transmission Date: 20130627
  Serious: Yes (Disabling)
  Sender: FDA-Public Use
  Company Number: None

PATIENT
  Sex: Female
  Weight: 59.88 kg

DRUGS (1)
  1. MIRENA [Suspect]
     Indication: INTRA-UTERINE CONTRACEPTIVE DEVICE
     Dates: start: 200809

REACTIONS (12)
  - Loss of libido [None]
  - Orgasm abnormal [None]
  - Vulvovaginal dryness [None]
  - Breast mass [None]
  - Musculoskeletal pain [None]
  - Neck pain [None]
  - Migraine [None]
  - Vaginal discharge [None]
  - Menorrhagia [None]
  - Abdominal distension [None]
  - Weight loss poor [None]
  - Dyspnoea [None]
